FAERS Safety Report 15405292 (Version 2)
Quarter: 2019Q1

REPORT INFORMATION
  Report Type: Spontaneous
  Country: IN (occurrence: IN)
  Receive Date: 20180920
  Receipt Date: 20190219
  Transmission Date: 20190417
  Serious: Yes (Other)
  Sender: FDA-Public Use
  Company Number: IN-SUN PHARMACEUTICAL INDUSTRIES LTD-2018R1-184874

PATIENT
  Age: 38 Year
  Sex: Male

DRUGS (1)
  1. TOPIRAMATE. [Suspect]
     Active Substance: TOPIRAMATE
     Indication: HEADACHE
     Dosage: 25 MILLIGRAM, QD
     Route: 048

REACTIONS (3)
  - Chorioretinopathy [Unknown]
  - Choroidal effusion [Unknown]
  - Maculopathy [Unknown]
